FAERS Safety Report 21568527 (Version 1)
Quarter: 2022Q4

REPORT INFORMATION
  Report Type: Report from Study
  Country: JP (occurrence: None)
  Receive Date: 20221108
  Receipt Date: 20221108
  Transmission Date: 20230112
  Serious: Yes (Death)
  Sender: FDA-Public Use
  Company Number: 2022A366735

PATIENT
  Age: 90 Year
  Sex: Female
  Weight: 63 kg

DRUGS (1)
  1. ONDEXXYA [Suspect]
     Active Substance: ANDEXANET ALFA
     Indication: Cerebral haemorrhage
     Dosage: 400 MG, 480 MG880.0MG UNKNOWN
     Route: 042
     Dates: start: 20220928

REACTIONS (1)
  - Death [Fatal]
